FAERS Safety Report 17646654 (Version 4)
Quarter: 2023Q4

REPORT INFORMATION
  Report Type: Spontaneous
  Country: US (occurrence: US)
  Receive Date: 20200408
  Receipt Date: 20231016
  Transmission Date: 20240109
  Serious: Yes (Other)
  Sender: FDA-Public Use
  Company Number: US-VERTEX PHARMACEUTICALS-2020-005446

PATIENT
  Age: 2 Year
  Sex: Male
  Weight: 19 kg

DRUGS (8)
  1. ORKAMBI [Suspect]
     Active Substance: IVACAFTOR\LUMACAFTOR
     Indication: Cystic fibrosis
     Dosage: 1 PACKET GRANULES (100MG LUMACAFTOR/125MG IVACAFTOR), BID
     Route: 048
     Dates: start: 20190820, end: 20191023
  2. ALBUTEROL SULFATE [Concomitant]
     Active Substance: ALBUTEROL SULFATE
     Indication: Wheezing
     Dosage: NEBULIZED 1 VIAL EVERY 3 HR AS NEEDED.
     Dates: start: 20181126, end: 20200518
  3. ALBUTEROL SULFATE [Concomitant]
     Active Substance: ALBUTEROL SULFATE
     Indication: Dyspnoea
     Dosage: 2.5MG/3ML NEBULIZER, 3ML EVERY 4 HOURS
     Dates: start: 20191018, end: 20200630
  4. ALBUTEROL SULFATE [Concomitant]
     Active Substance: ALBUTEROL SULFATE
     Indication: Cough
  5. URSODIOL [Concomitant]
     Active Substance: URSODIOL
     Dosage: 1 ML, BID
     Dates: start: 20190806, end: 20200318
  6. ZYRTEC [Concomitant]
     Active Substance: CETIRIZINE HYDROCHLORIDE
  7. BENADRYL [Concomitant]
     Active Substance: DIPHENHYDRAMINE HYDROCHLORIDE
  8. HYDROCORTISONE [Concomitant]
     Active Substance: HYDROCORTISONE
     Dosage: CREAM AFTER RASH, NONE PRIOR

REACTIONS (5)
  - Drug hypersensitivity [Unknown]
  - Abdominal pain upper [Recovered/Resolved]
  - Decreased appetite [Recovered/Resolved]
  - Diarrhoea [Not Recovered/Not Resolved]
  - Clostridium difficile infection [Unknown]

NARRATIVE: CASE EVENT DATE: 20190820
